FAERS Safety Report 9685535 (Version 2)
Quarter: 2014Q1

REPORT INFORMATION
  Report Type: Report from Study
  Country: US (occurrence: US)
  Receive Date: 20131113
  Receipt Date: 20140112
  Transmission Date: 20141002
  Serious: Yes (Other)
  Sender: FDA-Public Use
  Company Number: US-MERCK-1311USA001852

PATIENT
  Sex: 0

DRUGS (2)
  1. ZETIA [Suspect]
     Dosage: 10 MG, QD
     Route: 048
  2. ROSUVASTATIN CALCIUM [Suspect]
     Dosage: 10 MG, QD
     Route: 048

REACTIONS (1)
  - Angina unstable [Unknown]
